FAERS Safety Report 19221058 (Version 1)
Quarter: 2021Q2

REPORT INFORMATION
  Report Type: Other
  Country: US (occurrence: US)
  Receive Date: 20210506
  Receipt Date: 20210506
  Transmission Date: 20210717
  Serious: Yes (Hospitalization)
  Sender: FDA-Public Use
  Company Number: US-ROCHE-2820886

PATIENT
  Age: 59 Year
  Sex: Female
  Weight: 81.27 kg

DRUGS (1)
  1. OCREVUS [Suspect]
     Active Substance: OCRELIZUMAB
     Indication: RELAPSING-REMITTING MULTIPLE SCLEROSIS
     Dosage: ONGOING: UNKNOWN
     Route: 042
     Dates: start: 2018

REACTIONS (3)
  - COVID-19 [Recovered/Resolved]
  - Malaise [Recovered/Resolved]
  - Pulmonary thrombosis [Unknown]

NARRATIVE: CASE EVENT DATE: 202011
